FAERS Safety Report 5241562-4 (Version None)
Quarter: 2007Q1

REPORT INFORMATION
  Report Type: 
  Country: None (occurrence: None)
  Receive Date: 20070212
  Receipt Date: 20070212
  Transmission Date: 20070707
  Serious: Yes (Hospitalization)
  Sender: FDA-Public Use
  Company Number: None

PATIENT
  Age: 50 Year
  Sex: Male
  Weight: 75.7507 kg

DRUGS (2)
  1. BACLOFEN [Suspect]
     Indication: BACK PAIN
     Dosage: 10MG 1 TAB AT BEDTIME PO
     Route: 048
     Dates: start: 20060907, end: 20060928
  2. NEURONTIN [Suspect]
     Indication: NEUROPATHY
     Dosage: 300 MG/100 MG BID PO
     Route: 048
     Dates: start: 20060317, end: 20060928

REACTIONS (4)
  - ASTHENIA [None]
  - NEUROTOXICITY [None]
  - SPEECH DISORDER [None]
  - TREMOR [None]
